FAERS Safety Report 10449003 (Version 3)
Quarter: 2016Q1

REPORT INFORMATION
  Report Type: Spontaneous
  Country: US (occurrence: US)
  Receive Date: 20140912
  Receipt Date: 20160119
  Transmission Date: 20160525
  Serious: Yes (Other)
  Sender: FDA-Public Use
  Company Number: US-CIPLA LTD.-2014US00214

PATIENT

DRUGS (12)
  1. AMLODIPINE [Concomitant]
     Active Substance: AMLODIPINE BESYLATE
     Dosage: 5 MG, QD
     Route: 065
  2. HYDROCHLOROTHIAZIDE. [Concomitant]
     Active Substance: HYDROCHLOROTHIAZIDE
     Dosage: 25 MG DAILY
     Route: 065
  3. SPIRONOLACTONE. [Concomitant]
     Active Substance: SPIRONOLACTONE
     Dosage: 25 MG DAILY
     Route: 065
  4. LEVOTHYROXINE. [Concomitant]
     Active Substance: LEVOTHYROXINE
     Dosage: 50 MCG, DAILY
     Route: 065
  5. MEMANTINE. [Concomitant]
     Active Substance: MEMANTINE
     Dosage: 5 MG, DAILY,DURING THE FIRST TWO WEEKS OF THERAPY (WEEKS 4 AND 5OF HOSPITALIZATION)
     Route: 065
  6. RISPERIDONE. [Concomitant]
     Active Substance: RISPERIDONE
     Dosage: 0.25 MG, DAILY
     Route: 065
  7. FERROUS SULFATE [Concomitant]
     Active Substance: FERROUS SULFATE\FERROUS SULFATE, DRIED
     Dosage: 325 MG, BID
     Route: 065
  8. VALPROIC ACID. [Concomitant]
     Active Substance: VALPROIC ACID
     Dosage: 250 MG TWICE DAILY
     Route: 065
  9. DONEPEZIL. [Suspect]
     Active Substance: DONEPEZIL
     Indication: PSYCHOTIC DISORDER
     Dosage: 5 MG,DAILY
     Route: 065
  10. DONEPEZIL. [Suspect]
     Active Substance: DONEPEZIL
     Dosage: 10 MG, DAILY
     Route: 065
  11. QUETIAPINE [Concomitant]
     Active Substance: QUETIAPINE
     Indication: PSYCHOTIC DISORDER
     Dosage: 500 MG, AT BEDTIME
     Route: 065
  12. ASCORBIC ACID. [Concomitant]
     Active Substance: ASCORBIC ACID
     Dosage: 250 MG, BID
     Route: 065

REACTIONS (1)
  - Mania [Recovered/Resolved]
